FAERS Safety Report 8906403 (Version 1)
Quarter: 2012Q4

REPORT INFORMATION
  Report Type: Spontaneous
  Country: TR (occurrence: None)
  Receive Date: 20121107
  Receipt Date: 20121107
  Transmission Date: 20130627
  Serious: Yes (Disabling, Congenital Anomaly, Other)
  Sender: FDA-Public Use
  Company Number: 2012MA012710

PATIENT
  Age: 26 Day
  Sex: Male

DRUGS (1)
  1. CARBAMAZEPINE [Suspect]
     Indication: SEIZURE
     Dosage: 800 mg ; QD ; TRPL
     Route: 064

REACTIONS (8)
  - Maternal drugs affecting foetus [None]
  - Limb malformation [None]
  - Finger deformity [None]
  - Haemangioma congenital [None]
  - Low set ears [None]
  - High arched palate [None]
  - Talipes [None]
  - Joint range of motion decreased [None]
